FAERS Safety Report 5890089-5 (Version None)
Quarter: 2008Q3

REPORT INFORMATION
  Report Type: 
  Country: None (occurrence: None)
  Receive Date: 20080919
  Receipt Date: 20080912
  Transmission Date: 20090109
  Serious: Yes (Hospitalization)
  Sender: FDA-Public Use
  Company Number: US-B.I. PHARMACEUTICALS,INC./RIDGEFIELD-2008-BP-13678BP

PATIENT
  Sex: Female
  Weight: 69 kg

DRUGS (8)
  1. MIRAPEX [Suspect]
     Indication: PARKINSON'S DISEASE
     Dosage: 2MG
     Dates: start: 20060101, end: 20080902
  2. STALEVO 100 [Concomitant]
     Dosage: 300MG
     Dates: start: 20071203
  3. AZILECT [Concomitant]
     Dosage: 1MG
     Dates: start: 20060101
  4. CALCIUM GLUCONATE [Concomitant]
  5. M.V.I. [Concomitant]
  6. VITAMIN E [Concomitant]
     Dosage: 400U
  7. ARALAST [Concomitant]
     Dosage: 1MG
     Route: 048
  8. LEVO [Concomitant]

REACTIONS (4)
  - HEART RATE IRREGULAR [None]
  - HYPERSOMNIA [None]
  - ROAD TRAFFIC ACCIDENT [None]
  - SLEEP ATTACKS [None]
